FAERS Safety Report 10866103 (Version 1)
Quarter: 2015Q1

REPORT INFORMATION
  Report Type: Spontaneous
  Country: US (occurrence: None)
  Receive Date: 20150220
  Receipt Date: 20150220
  Transmission Date: 20150721
  Serious: Yes (Other)
  Sender: FDA-Public Use
  Company Number: None

PATIENT
  Age: 76 Year
  Sex: Male

DRUGS (1)
  1. XGEVA [Suspect]
     Active Substance: DENOSUMAB
     Indication: PROSTATE CANCER
     Route: 058
     Dates: start: 20110928, end: 20150105

REACTIONS (5)
  - Tooth extraction [None]
  - Gingival disorder [None]
  - Mastication disorder [None]
  - Impaired healing [None]
  - Sensitivity of teeth [None]

NARRATIVE: CASE EVENT DATE: 20150217
